FAERS Safety Report 18116459 (Version 4)
Quarter: 2021Q1

REPORT INFORMATION
  Report Type: Report from Study
  Country: US (occurrence: US)
  Receive Date: 20200805
  Receipt Date: 20210108
  Transmission Date: 20210419
  Serious: Yes (Hospitalization)
  Sender: FDA-Public Use
  Company Number: US-TAIHO ONCOLOGY  INC-EU-2020-02741

PATIENT
  Age: 61 Year
  Sex: Male
  Weight: 94 kg

DRUGS (3)
  1. TAS?102 [Suspect]
     Active Substance: TIPIRACIL HYDROCHLORIDE\TRIFLURIDINE
     Indication: ADENOCARCINOMA GASTRIC
     Dosage: CYCLE UNKNOWN. DISCONTINUED ON
     Route: 048
     Dates: start: 20200625, end: 20200727
  2. LOVENOX [Concomitant]
     Active Substance: ENOXAPARIN SODIUM
  3. RAMUCIRUMAB [Suspect]
     Active Substance: RAMUCIRUMAB
     Indication: ADENOCARCINOMA GASTRIC
     Dosage: 760 MG (8MG/KG) IN 76ML (CONC.10 MG/ML)  AND CYCLE UNKNOWN
     Route: 042
     Dates: start: 20200625, end: 20200723

REACTIONS (1)
  - Cerebrovascular accident [Unknown]

NARRATIVE: CASE EVENT DATE: 20200730
